FAERS Safety Report 4940065-1 (Version None)
Quarter: 2006Q1

REPORT INFORMATION
  Report Type: 
  Country: None (occurrence: None)
  Receive Date: 20060310
  Receipt Date: 20060124
  Transmission Date: 20060701
  Serious: Yes (Other)
  Sender: FDA-Public Use
  Company Number: JP-ROCHE-433913

PATIENT
  Age: 11 Year
  Sex: Male
  Weight: 31 kg

DRUGS (3)
  1. TAMIFLU [Suspect]
     Route: 048
     Dates: start: 20060123, end: 20060123
  2. ACETAMINOPHEN [Concomitant]
     Route: 048
     Dates: start: 20060123, end: 20060123
  3. NAUZELIN [Concomitant]
     Route: 048
     Dates: start: 20060123, end: 20060123

REACTIONS (2)
  - ABNORMAL BEHAVIOUR [None]
  - HALLUCINATION [None]
